FAERS Safety Report 20315897 (Version 1)
Quarter: 2022Q1

REPORT INFORMATION
  Report Type: Spontaneous
  Country: CN (occurrence: CN)
  Receive Date: 20220110
  Receipt Date: 20220110
  Transmission Date: 20220423
  Serious: Yes (Life-Threatening, Hospitalization, Other)
  Sender: FDA-Public Use
  Company Number: CN-MLMSERVICE-20211231-3291484-1

PATIENT
  Age: 34 Year
  Sex: Male

DRUGS (9)
  1. DEXAMETHASONE [Suspect]
     Active Substance: DEXAMETHASONE
     Indication: Histiocytic sarcoma
     Dosage: 10MG DEXAMETHASONE FOR FIVE DAYS
     Route: 065
  2. VINCRISTINE [Suspect]
     Active Substance: VINCRISTINE
     Indication: Histiocytic sarcoma
     Dosage: 2 MG VINCRISTINE ON THE 1ST DAY
     Route: 065
  3. PREDNISONE [Suspect]
     Active Substance: PREDNISONE
     Indication: Histiocytic sarcoma
     Dosage: 50 MG PREDNISONE, BID, FOR 5 DAYS
     Route: 065
  4. ETOPOSIDE [Suspect]
     Active Substance: ETOPOSIDE
     Indication: Histiocytic sarcoma
     Dosage: VP-16 WAS ADJUSTED TO 100 MG FOR THE FIRST THREE DAYS
     Route: 065
  5. ETOPOSIDE [Suspect]
     Active Substance: ETOPOSIDE
     Dosage: 100 MG ETOPOSIDE (VP-16) FOR THE FIRST FOUR DAYS
     Route: 065
  6. DOXORUBICIN [Suspect]
     Active Substance: DOXORUBICIN
     Indication: Histiocytic sarcoma
     Dosage: 60 MG LIPOSOMAL DOXORUBICIN ON THE 1ST DAY
     Route: 065
  7. DOXORUBICIN [Suspect]
     Active Substance: DOXORUBICIN
     Indication: Histiocytic sarcoma
     Dosage: 60 MG LIPOSOMAL DOXORUBICIN ON THE 1ST DAY
     Route: 065
  8. CISPLATIN [Suspect]
     Active Substance: CISPLATIN
     Indication: Histiocytic sarcoma
     Dosage: 40 MG CISPLATIN (DDP) FOR THE FIRST THREE DAYS
     Route: 065
  9. CYCLOPHOSPHAMIDE [Suspect]
     Active Substance: CYCLOPHOSPHAMIDE
     Indication: Histiocytic sarcoma
     Dosage: 600 MG CYCLOPHOSPHAMIDE ON THE 1ST AND 5TH DAY
     Route: 065

REACTIONS (1)
  - Acute myeloid leukaemia [Recovered/Resolved]
